FAERS Safety Report 5474825-8 (Version None)
Quarter: 2007Q4

REPORT INFORMATION
  Report Type: 
  Country: None (occurrence: None)
  Receive Date: 20071002
  Receipt Date: 20070822
  Transmission Date: 20080405
  Serious: Yes (Hospitalization)
  Sender: FDA-Public Use
  Company Number: US-MERCK-0708USA05553

PATIENT
  Age: 56 Year
  Sex: Female

DRUGS (2)
  1. FOSAMAX [Suspect]
     Route: 048
     Dates: end: 20050308
  2. NEXIUM [Concomitant]
     Route: 065

REACTIONS (2)
  - GASTRIC DISORDER [None]
  - NON-CARDIAC CHEST PAIN [None]
